FAERS Safety Report 19021583 (Version 2)
Quarter: 2021Q2

REPORT INFORMATION
  Report Type: Spontaneous
  Country: JP (occurrence: JP)
  Receive Date: 20210317
  Receipt Date: 20210407
  Transmission Date: 20210717
  Serious: Yes (Other)
  Sender: FDA-Public Use
  Company Number: JP-ANIPHARMA-2021-JP-000115

PATIENT
  Sex: Male

DRUGS (9)
  1. MAGNESIUM OXIDE. [Concomitant]
     Active Substance: MAGNESIUM OXIDE
     Dosage: UNKNOWN DOSE AND FREQUENCY
     Route: 050
  2. AMLODIN [Concomitant]
     Active Substance: AMLODIPINE BESYLATE
     Dosage: UNKNOWN DOSE AND FREQUENCY
     Route: 050
  3. MUCOSTA [Concomitant]
     Active Substance: REBAMIPIDE
     Dosage: UNKNOWN DOSE AND FREQUENCY
     Route: 050
  4. TRESIBA [Concomitant]
     Active Substance: INSULIN DEGLUDEC
     Dosage: UNKNOWN DOSE AND FREQUENCY
     Route: 050
  5. NOVORAPID [Concomitant]
     Active Substance: INSULIN ASPART
     Dosage: UNKNOWN DOSE AND FREQUENCY
     Route: 050
  6. ADONA [Concomitant]
     Dosage: UNKNOWN DOSE AND FREQUENCY
     Route: 050
  7. CANDESARTAN CILEXETIL. [Suspect]
     Active Substance: CANDESARTAN CILEXETIL
     Indication: PRODUCT USED FOR UNKNOWN INDICATION
     Dosage: UNKNOWN DOSE AND FREQUENCY
     Route: 048
  8. TAKEPRON [Suspect]
     Active Substance: LANSOPRAZOLE
     Dosage: UNKNOWN DOSE AND FREQUENCY
     Route: 048
     Dates: start: 20171010
  9. MEVALOTIN [Concomitant]
     Active Substance: PRAVASTATIN SODIUM
     Dosage: UNKNOWN DOSE AND FREQUENCY
     Route: 050

REACTIONS (5)
  - Gastric cancer [Unknown]
  - White blood cell count decreased [Unknown]
  - Carcinoembryonic antigen increased [Unknown]
  - Red blood cell count decreased [Unknown]
  - Anaemia [Unknown]

NARRATIVE: CASE EVENT DATE: 2021
